FAERS Safety Report 4717125-3 (Version None)
Quarter: 2005Q3

REPORT INFORMATION
  Report Type: 
  Country: None (occurrence: None)
  Receive Date: 20050715
  Receipt Date: 20050705
  Transmission Date: 20060218
  Serious: Yes (Hospitalization, Other)
  Sender: FDA-Public Use
  Company Number: HQWYE034907JUL05

PATIENT
  Age: 10 Year

DRUGS (1)
  1. ADVIL [Suspect]
     Indication: VIRAL INFECTION
     Dosage: 100 MG 3X PER 1 DAY

REACTIONS (2)
  - DEHYDRATION [None]
  - RENAL FAILURE ACUTE [None]
